FAERS Safety Report 25054729 (Version 1)
Quarter: 2025Q1

REPORT INFORMATION
  Report Type: Spontaneous
  Country: US (occurrence: US)
  Receive Date: 20250308
  Receipt Date: 20250308
  Transmission Date: 20250408
  Serious: No
  Sender: SANOFI AVENTIS
  Company Number: US-SA-2025SA068712

PATIENT
  Sex: Female

DRUGS (3)
  1. DUPIXENT [Suspect]
     Active Substance: DUPILUMAB
     Indication: Asthma
     Dosage: 300 MG, QOW
     Route: 058
     Dates: start: 202007
  2. TREMFYA [Concomitant]
     Active Substance: GUSELKUMAB
  3. RUCONEST [Concomitant]
     Active Substance: CONESTAT ALFA

REACTIONS (3)
  - Psoriasis [Unknown]
  - Rash erythematous [Unknown]
  - Rash [Unknown]
